FAERS Safety Report 8145005-2 (Version None)
Quarter: 2012Q1

REPORT INFORMATION
  Report Type: 
  Country: None (occurrence: None)
  Receive Date: 20120217
  Receipt Date: 20120208
  Transmission Date: 20120608
  Serious: Yes (Hospitalization, Other)
  Sender: FDA-Public Use
  Company Number: PHHY2012BR003491

PATIENT
  Sex: Male

DRUGS (10)
  1. OMEPRAZOLE [Concomitant]
     Indication: GASTRITIS
     Dosage: 1 DF, IN MORNING
  2. FENOFIBRATE [Concomitant]
     Indication: BLOOD TRIGLYCERIDES
     Dosage: 1 DF,  AT NIGHT
  3. FINASTERIDE [Concomitant]
     Dosage: 1 DF, AT NIGHT
  4. BAMIFIX [Concomitant]
     Dosage: UNK
  5. ONBREZ [Suspect]
     Dosage: 300 UG, UNK
  6. OMEPRAZOLE [Concomitant]
     Indication: ABDOMINAL PAIN UPPER
  7. ALBUTEROL SULFATE AUTOHALER [Concomitant]
     Indication: DYSPNOEA
     Dosage: UNK
  8. ONBREZ [Suspect]
     Indication: DYSPNOEA
     Dosage: 2 DF, MORNING AND AFTERNOON
  9. GALVUS MET [Concomitant]
     Indication: DIABETES MELLITUS
     Dosage: 1 DF, DAILY
  10. BUPROPION HCL [Concomitant]
     Indication: ANXIETY
     Dosage: 1 DF, ONCE/SINGLE

REACTIONS (6)
  - LUNG NEOPLASM MALIGNANT [None]
  - GENERAL PHYSICAL HEALTH DETERIORATION [None]
  - DYSPNOEA [None]
  - CONDITION AGGRAVATED [None]
  - CHRONIC OBSTRUCTIVE PULMONARY DISEASE [None]
  - CHEST PAIN [None]
